FAERS Safety Report 5107656-9 (Version None)
Quarter: 2006Q3

REPORT INFORMATION
  Report Type: 
  Country: None (occurrence: None)
  Receive Date: 20060919
  Receipt Date: 20060908
  Transmission Date: 20061208
  Serious: Yes (Other)
  Sender: FDA-Public Use
  Company Number: US-JNJFOC-20060804060

PATIENT
  Sex: Female
  Weight: 56.7 kg

DRUGS (20)
  1. REMICADE [Suspect]
     Route: 042
  2. REMICADE [Suspect]
     Route: 042
  3. REMICADE [Suspect]
     Route: 042
  4. REMICADE [Suspect]
     Route: 042
  5. REMICADE [Suspect]
     Route: 042
  6. REMICADE [Suspect]
     Route: 042
  7. REMICADE [Suspect]
     Route: 042
  8. REMICADE [Suspect]
     Route: 042
  9. REMICADE [Suspect]
     Route: 042
  10. REMICADE [Suspect]
     Route: 042
  11. REMICADE [Suspect]
     Route: 042
  12. REMICADE [Suspect]
     Route: 042
  13. REMICADE [Suspect]
     Route: 042
  14. REMICADE [Suspect]
     Indication: RHEUMATOID ARTHRITIS
     Route: 042
  15. LEVOXYL [Concomitant]
     Indication: HYPOTHYROIDISM
     Route: 048
  16. PREDNISONE [Concomitant]
     Indication: RHEUMATOID ARTHRITIS
  17. FOSAMAX [Concomitant]
     Indication: OSTEOPOROSIS
  18. M.V.I. [Concomitant]
  19. HYDREA [Concomitant]
     Indication: MYELOPROLIFERATIVE DISORDER
  20. LIPITOR [Concomitant]

REACTIONS (3)
  - CATARACT [None]
  - LUNG NEOPLASM MALIGNANT [None]
  - POLYCYTHAEMIA VERA [None]
